FAERS Safety Report 25417262 (Version 1)
Quarter: 2025Q2

REPORT INFORMATION
  Report Type: Spontaneous
  Country: US (occurrence: US)
  Receive Date: 20250610
  Receipt Date: 20250610
  Transmission Date: 20250717
  Serious: No
  Sender: GRIFOLS
  Company Number: US-IGSA-BIG0035626

PATIENT
  Sex: Female
  Weight: 140.59 kg

DRUGS (2)
  1. GAMUNEX-C [Suspect]
     Active Substance: HUMAN IMMUNOGLOBULIN G
     Indication: Chronic inflammatory demyelinating polyradiculoneuropathy
     Dosage: 70 GRAM, QD
     Route: 042
     Dates: start: 2022
  2. GAMUNEX-C [Suspect]
     Active Substance: HUMAN IMMUNOGLOBULIN G
     Dosage: 70 GRAM, QD
     Route: 042
     Dates: start: 2022

REACTIONS (4)
  - Rash pruritic [Recovering/Resolving]
  - Flushing [Recovering/Resolving]
  - Lip swelling [Recovering/Resolving]
  - Blood pressure increased [Recovering/Resolving]
